FAERS Safety Report 9518099 (Version 1)
Quarter: 2013Q1

REPORT INFORMATION
  Report Type: Spontaneous
  Country: US (occurrence: None)
  Receive Date: 20130305
  Receipt Date: 20130305
  Transmission Date: 20140127
  Serious: Yes (Other)
  Sender: FDA-Public Use
  Company Number: 163-21880-12063393

PATIENT
  Age: 61 Year
  Sex: Female

DRUGS (7)
  1. REVLIMID [Suspect]
     Indication: PLASMA CELL MYELOMA
     Dosage: 21 IN 28 DAYS
     Route: 048
     Dates: start: 20090918
  2. ALBUTEROL (SALBUTALMOL) (INKNOWN) [Concomitant]
  3. AMITRIPTYLIN (AMITRIPTYLLINE HYDROCHLORIDE) (UNKNOWN) [Concomitant]
  4. COUMADIN (WARFARIN SODIUM) (UNKNOWN) [Concomitant]
  5. CYCLOBENZAPRIN (CYCLOBENZAPRIN) (UNKNOOWN) [Concomitant]
  6. SUDAFED (PSUEOPHEDRINE HYDROCHLORIDE) (UNKNOWN) [Concomitant]
  7. ZOMETA (ZOLENDRONIC ACID) (INJECTION) [Concomitant]

REACTIONS (2)
  - Vitamin D decreased [None]
  - Muscle spasms [None]
